FAERS Safety Report 9336685 (Version 2)
Quarter: 2013Q2

REPORT INFORMATION
  Report Type: Spontaneous
  Country: US (occurrence: US)
  Receive Date: 20130607
  Receipt Date: 20130620
  Transmission Date: 20140414
  Serious: Yes (Other)
  Sender: FDA-Public Use
  Company Number: US-ASTELLAS-2013US005930

PATIENT
  Sex: Female

DRUGS (2)
  1. TARCEVA [Suspect]
     Indication: LUNG NEOPLASM MALIGNANT
     Dosage: 150 MG, UNKNOWN/D
     Route: 065
     Dates: start: 2012
  2. TARCEVA [Suspect]
     Dosage: 100 MG, UNKNOWN/D
     Route: 065
     Dates: start: 2013

REACTIONS (4)
  - Eye disorder [Unknown]
  - Hair disorder [Unknown]
  - Rash [Unknown]
  - Diarrhoea [Recovered/Resolved]
